FAERS Safety Report 25131541 (Version 1)
Quarter: 2025Q1

REPORT INFORMATION
  Report Type: Spontaneous
  Country: CA (occurrence: CA)
  Receive Date: 20250327
  Receipt Date: 20250327
  Transmission Date: 20250408
  Serious: Yes (Hospitalization)
  Sender: MYLAN
  Company Number: CA-MYLANLABS-2025M1026228

PATIENT
  Age: 86 Year
  Sex: Male

DRUGS (2)
  1. PHENYTOIN [Interacting]
     Active Substance: PHENYTOIN
     Indication: Product used for unknown indication
  2. TRAZODONE HYDROCHLORIDE [Interacting]
     Active Substance: TRAZODONE HYDROCHLORIDE
     Indication: Product used for unknown indication

REACTIONS (6)
  - Fall [Unknown]
  - Gait disturbance [Unknown]
  - Nystagmus [Unknown]
  - Tremor [Unknown]
  - Toxicity to various agents [Unknown]
  - Drug interaction [Unknown]
